FAERS Safety Report 5796306-4 (Version None)
Quarter: 2008Q2

REPORT INFORMATION
  Report Type: 
  Country: None (occurrence: None)
  Receive Date: 20080626
  Receipt Date: 20080616
  Transmission Date: 20081010
  Serious: Yes (Life-Threatening, Hospitalization, Other)
  Sender: FDA-Public Use
  Company Number: 235755J08USA

PATIENT
  Age: 43 Year
  Sex: Female
  Weight: 81.6475 kg

DRUGS (9)
  1. REBIF [Suspect]
     Indication: MULTIPLE SCLEROSIS
     Dosage: 44 MCG, 3 IN 1 WEEKS, SUBCUTANEOUS
     Route: 058
     Dates: start: 20060406, end: 20080130
  2. TEGRETOL [Concomitant]
  3. NEXIUM [Concomitant]
  4. PROZAC [Concomitant]
  5. PRAVASTATIN [Concomitant]
  6. VICODIN [Concomitant]
  7. CELEBREX [Concomitant]
  8. FLEXERIL [Concomitant]
  9. PROVIGIL [Concomitant]

REACTIONS (4)
  - ANAESTHETIC COMPLICATION CARDIAC [None]
  - CARDIAC ARREST [None]
  - INCORRECT DOSE ADMINISTERED [None]
  - OVARIAN CYST [None]
